FAERS Safety Report 5273393-3 (Version None)
Quarter: 2007Q1

REPORT INFORMATION
  Report Type: 
  Country: None (occurrence: None)
  Receive Date: 20070320
  Receipt Date: 20070306
  Transmission Date: 20070707
  Serious: Yes (Hospitalization)
  Sender: FDA-Public Use
  Company Number: 02100-JPN-07-0114

PATIENT
  Age: 62 Year
  Sex: Male

DRUGS (11)
  1. CILOSTAZOL [Suspect]
     Indication: CEREBRAL INFARCTION
     Dosage: 200 MG ORAL
     Route: 048
     Dates: start: 20060921, end: 20070214
  2. ASPIRIN [Suspect]
     Dosage: 100 MG ORAL
     Route: 048
     Dates: end: 20070214
  3. VOGLIBOSE [Concomitant]
  4. GLIMEPIRIDE [Concomitant]
  5. PIOGLITAZONE HCL [Concomitant]
  6. NIFEDIPINE [Concomitant]
  7. ENALAPRIL MALEATE [Concomitant]
  8. CANDESARTAN CILEXETIL [Concomitant]
  9. DILAZEP HYDROCHLORIDE [Concomitant]
  10. TEPRENONE [Concomitant]
  11. FAMOTIDINE [Concomitant]

REACTIONS (3)
  - ANAEMIA [None]
  - GASTRIC ULCER [None]
  - THROMBOSIS [None]
